FAERS Safety Report 8026958-X (Version None)
Quarter: 2011Q4

REPORT INFORMATION
  Report Type: 
  Country: None (occurrence: None)
  Receive Date: 20111130
  Receipt Date: 20110822
  Transmission Date: 20120403
  Serious: Yes (Other)
  Sender: FDA-Public Use
  Company Number: US201008003008

PATIENT
  Sex: Female
  Weight: 116.1 kg

DRUGS (11)
  1. PRILOSEC [Concomitant]
  2. BYETTA [Suspect]
     Indication: TYPE 2 DIABETES MELLITUS
     Dates: start: 20061127, end: 20100601
  3. EVISTA /SCH/ (RALOXIFENE HYDROCHLORIDE) [Concomitant]
  4. ASPIRIN [Concomitant]
  5. HUMULIN N [Concomitant]
  6. LIPITOR [Concomitant]
  7. AVANDIA [Concomitant]
  8. GLUCOPHAGE [Concomitant]
  9. ALDACTONE [Concomitant]
  10. CYMBALTA [Concomitant]
  11. LISINOPRIL [Concomitant]

REACTIONS (4)
  - RENAL FAILURE [None]
  - RENAL FAILURE CHRONIC [None]
  - OFF LABEL USE [None]
  - GLOMERULAR FILTRATION RATE DECREASED [None]
